FAERS Safety Report 5386517-4 (Version None)
Quarter: 2007Q3

REPORT INFORMATION
  Report Type: 
  Country: None (occurrence: None)
  Receive Date: 20070710
  Receipt Date: 20070419
  Transmission Date: 20080115
  Serious: Yes (Hospitalization)
  Sender: FDA-Public Use
  Company Number: 8024983

PATIENT
  Age: 39 Year
  Sex: Male

DRUGS (7)
  1. KEPPRA [Suspect]
     Dates: start: 20030116
  2. SERTRALINE HCL [Concomitant]
  3. PAROXETINE HCL [Concomitant]
  4. ZOLPIDEM TARTRATE [Concomitant]
  5. CITALOPRAM HYDROBROMIDE [Concomitant]
  6. OXCARBAZEPINE [Concomitant]
  7. CLOPIDOGREL BISULFATE [Concomitant]

REACTIONS (4)
  - DELUSIONAL DISORDER, PERSECUTORY TYPE [None]
  - DEPRESSION [None]
  - LACERATION [None]
  - SUICIDE ATTEMPT [None]
